FAERS Safety Report 13857584 (Version 1)
Quarter: 2017Q3

REPORT INFORMATION
  Report Type: Spontaneous
  Country: UA (occurrence: UA)
  Receive Date: 20170811
  Receipt Date: 20170811
  Transmission Date: 20171127
  Serious: Yes (Hospitalization)
  Sender: FDA-Public Use
  Company Number: PHHY2017UA112978

PATIENT
  Age: 59 Year
  Sex: Female

DRUGS (4)
  1. METOPROLOL. [Concomitant]
     Active Substance: METOPROLOL
     Indication: DISEASE RISK FACTOR
     Dosage: 50 MG, BID
     Route: 065
  2. ATORVASTATIN [Suspect]
     Active Substance: ATORVASTATIN
     Indication: DYSLIPIDAEMIA
     Dosage: 40 MG, QD
     Route: 048
  3. METFORMIN [Concomitant]
     Active Substance: METFORMIN HYDROCHLORIDE
     Indication: HYPOGLYCAEMIA
     Dosage: 1000 MG, BID
     Route: 065
  4. TIKLOPIDIN [Concomitant]
     Indication: DISEASE RISK FACTOR
     Dosage: 250 MG, BID
     Route: 065

REACTIONS (2)
  - Hepatomegaly [Recovering/Resolving]
  - Drug-induced liver injury [Recovering/Resolving]
